FAERS Safety Report 8268308-X (Version None)
Quarter: 2012Q2

REPORT INFORMATION
  Report Type: 
  Country: None (occurrence: None)
  Receive Date: 20120409
  Receipt Date: 20120327
  Transmission Date: 20120825
  Serious: Yes (Other)
  Sender: FDA-Public Use
  Company Number: JP-ROCHE-1056545

PATIENT
  Sex: Male

DRUGS (7)
  1. GATIFLOXACIN [Concomitant]
     Dates: start: 20100101, end: 20100101
  2. RANIBIZUMAB [Suspect]
     Indication: AGE-RELATED MACULAR DEGENERATION
     Route: 050
     Dates: start: 20100126
  3. AMLODIPINE [Concomitant]
  4. XALATAN [Concomitant]
  5. VISUDYNE [Concomitant]
     Indication: AGE-RELATED MACULAR DEGENERATION
     Dates: start: 20061001, end: 20100129
  6. TIMOLOL MALEATE [Concomitant]
  7. LIPITOR [Concomitant]

REACTIONS (1)
  - RETINAL HAEMORRHAGE [None]
